APPROVED DRUG PRODUCT: DEXAMETHASONE INTENSOL
Active Ingredient: DEXAMETHASONE
Strength: 1MG/ML
Dosage Form/Route: CONCENTRATE;ORAL
Application: A088252 | Product #001
Applicant: HIKMA PHARMACEUTICALS USA INC
Approved: Sep 1, 1983 | RLD: Yes | RS: Yes | Type: RX